FAERS Safety Report 14752416 (Version 4)
Quarter: 2020Q1

REPORT INFORMATION
  Report Type: Spontaneous
  Country: US (occurrence: US)
  Receive Date: 20180412
  Receipt Date: 20200214
  Transmission Date: 20200409
  Serious: Yes (Hospitalization)
  Sender: FDA-Public Use
  Company Number: US-PFIZER INC-2017538483

PATIENT
  Age: 63 Year
  Sex: Female

DRUGS (34)
  1. FOLIC ACID. [Concomitant]
     Active Substance: FOLIC ACID
     Indication: ANAEMIA
     Dosage: 1 MG, 1X/DAY
     Route: 048
     Dates: start: 2005
  2. TIZANIDINE. [Concomitant]
     Active Substance: TIZANIDINE
     Indication: PAIN
     Dosage: 4 MG, AS NEEDED
     Dates: start: 201309, end: 201711
  3. POTASSIUM [Concomitant]
     Active Substance: POTASSIUM
     Indication: HYPOKALAEMIC SYNDROME
     Dosage: 20 MG, 1X/DAY
     Route: 048
     Dates: start: 2004, end: 201802
  4. REVATIO [Suspect]
     Active Substance: SILDENAFIL CITRATE
     Indication: PULMONARY HYPERTENSION
     Dosage: 20 MG, 3X/DAY
     Dates: start: 200902
  5. CALTRATE 600+D [Concomitant]
     Indication: BONE DISORDER
     Dosage: 1 DF, 1X/DAY
     Route: 048
     Dates: start: 2004
  6. FUROSEMIDE. [Concomitant]
     Active Substance: FUROSEMIDE
     Indication: HYPERTENSION
     Dosage: TABLET ONCE A DAY BY MOUTH. EVERY OTHER DAY SHE ALTERNATES BETWEEN A 20MG AND 40MG
     Route: 048
     Dates: start: 1985
  7. GABAPENTIN. [Concomitant]
     Active Substance: GABAPENTIN
     Indication: INTERVERTEBRAL DISC PROTRUSION
  8. MONTELUKAST [Concomitant]
     Active Substance: MONTELUKAST SODIUM
     Indication: SINUSITIS
     Dosage: 10 MG, 1X/DAY
     Route: 048
     Dates: start: 201509, end: 201802
  9. OMEPRAZOLE. [Concomitant]
     Active Substance: OMEPRAZOLE
     Indication: GASTROOESOPHAGEAL REFLUX DISEASE
     Dosage: 20 MG, 1X/DAY
     Route: 048
     Dates: start: 201008
  10. METHOTREXATE. [Concomitant]
     Active Substance: METHOTREXATE
     Indication: RHEUMATOID ARTHRITIS
     Dosage: 20 MG, WEEKLY (2.5MG 8 TABLETS ONCE A WEEK BY MOUTH)
     Route: 048
     Dates: start: 2005
  11. MELOXICAM. [Concomitant]
     Active Substance: MELOXICAM
     Indication: RHEUMATOID ARTHRITIS
     Dosage: 7.5 MG, 1X/DAY
     Route: 048
     Dates: start: 201005
  12. VITAMIN D [Concomitant]
     Active Substance: VITAMIN D NOS
     Indication: BONE DISORDER
     Dosage: 400 IU, 2X/DAY
     Route: 048
     Dates: start: 2004
  13. GABAPENTIN. [Concomitant]
     Active Substance: GABAPENTIN
     Indication: CARPAL TUNNEL SYNDROME
     Dosage: 600 MG, 3X/DAY
     Route: 048
     Dates: start: 201210
  14. XYZAL [Concomitant]
     Active Substance: LEVOCETIRIZINE DIHYDROCHLORIDE
     Dosage: UNK
     Dates: start: 201709
  15. ASPIRIN. [Concomitant]
     Active Substance: ASPIRIN
     Indication: CARDIAC DISORDER
     Dosage: 81 MG, 1X/DAY
     Route: 048
     Dates: start: 20171116
  16. CYCLOBENZAPRINE. [Concomitant]
     Active Substance: CYCLOBENZAPRINE
     Indication: NERVE COMPRESSION
  17. TRAMADOL. [Concomitant]
     Active Substance: TRAMADOL
     Indication: PAIN
     Dosage: 50 MG, AS NEEDED
     Dates: start: 201112, end: 201711
  18. METFORMIN [Concomitant]
     Active Substance: METFORMIN HYDROCHLORIDE
     Indication: DIABETES MELLITUS
     Dosage: 500 MG, 2X/DAY
     Route: 048
     Dates: start: 201506
  19. AMLODIPINE [Concomitant]
     Active Substance: AMLODIPINE BESYLATE
     Indication: HYPERTENSION
     Dosage: 5 MG, 1X/DAY
     Route: 048
     Dates: start: 201007
  20. NASONEX [Concomitant]
     Active Substance: MOMETASONE FUROATE
     Indication: HYPERSENSITIVITY
     Dosage: 50MG TWO SPRAYS IN EACH NOSTRIL DAILY
     Route: 045
     Dates: start: 201005
  21. PRAVASTATIN. [Concomitant]
     Active Substance: PRAVASTATIN
     Indication: BLOOD CHOLESTEROL INCREASED
     Dosage: 10 MG, 1X/DAY
     Route: 048
     Dates: start: 201201
  22. DICYCLOMINE [Concomitant]
     Active Substance: DICYCLOMINE HYDROCHLORIDE
     Indication: DIARRHOEA
  23. FIBERCON + CALCIUM [Concomitant]
     Indication: IRRITABLE BOWEL SYNDROME
     Dosage: 625 MG, 1X/DAY
     Route: 048
     Dates: start: 201101
  24. FIBERCON + CALCIUM [Concomitant]
     Indication: DIARRHOEA
  25. REVATIO [Suspect]
     Active Substance: SILDENAFIL CITRATE
     Dosage: 20 MG, 3X/DAY
     Dates: end: 20171115
  26. PRAVASTATIN. [Concomitant]
     Active Substance: PRAVASTATIN
     Indication: LOW DENSITY LIPOPROTEIN INCREASED
  27. XYZAL [Concomitant]
     Active Substance: LEVOCETIRIZINE DIHYDROCHLORIDE
     Indication: HYPERSENSITIVITY
     Dosage: 1 DF, DAILY
     Dates: start: 201708
  28. HYDROXYZINE [Concomitant]
     Active Substance: HYDROXYZINE HYDROCHLORIDE
     Indication: PRURITUS
     Dosage: 25MG TABLET ONE TO TWO TABLETS AT NIGHT BY MOUTH
     Route: 048
     Dates: start: 201005
  29. DICYCLOMINE [Concomitant]
     Active Substance: DICYCLOMINE HYDROCHLORIDE
     Indication: IRRITABLE BOWEL SYNDROME
     Dosage: 10 MG, 3X/DAY
     Route: 048
     Dates: start: 201101
  30. TRIAMCINOLONE [Concomitant]
     Active Substance: TRIAMCINOLONE
     Indication: HYPERSENSITIVITY
     Dosage: 1% APPLY AS NEEDED
     Dates: start: 201011
  31. CYCLOBENZAPRINE. [Concomitant]
     Active Substance: CYCLOBENZAPRINE
     Indication: PAIN
     Dosage: 5 MG, AS NEEDED
     Dates: start: 201112, end: 201709
  32. WARFARIN [Concomitant]
     Active Substance: WARFARIN
     Indication: ANTICOAGULANT THERAPY
     Dosage: 4MG TABLET AS DIRECTED
     Dates: start: 20171116, end: 201802
  33. REVATIO [Suspect]
     Active Substance: SILDENAFIL CITRATE
     Dosage: 20 MG, 3X/DAY
     Route: 048
  34. ASTEPRO [Concomitant]
     Active Substance: AZELASTINE HYDROCHLORIDE
     Indication: HYPERSENSITIVITY
     Dosage: 0.15MG 2 SPRAYS IN EACH NOSTRIL DAILY
     Dates: start: 201011

REACTIONS (1)
  - Pain [Not Recovered/Not Resolved]

NARRATIVE: CASE EVENT DATE: 2017
